FAERS Safety Report 4284486-1 (Version None)
Quarter: 2004Q1

REPORT INFORMATION
  Report Type: 
  Country: None (occurrence: None)
  Receive Date: 20040130
  Receipt Date: 20040122
  Transmission Date: 20041129
  Serious: Yes (Hospitalization, Other)
  Sender: FDA-Public Use
  Company Number: 2003114290

PATIENT
  Age: 56 Year
  Sex: Female
  Weight: 58.0604 kg

DRUGS (13)
  1. TIKOSYN [Suspect]
     Indication: ATRIAL FIBRILLATION
     Dosage: 1000 MCG (BID), ORAL
     Route: 048
     Dates: start: 20030101
  2. POLYSACCHARIDE-IRON COMPLEX (POLYSACCHARIDE-IRON COMPLEX) [Suspect]
     Indication: ANAEMIA
     Dates: start: 20030101, end: 20030101
  3. EZETIMIBE (EZETIMIBE) [Concomitant]
  4. CLOPIDOGREL BISULFATE [Concomitant]
  5. LISINOPRIL [Concomitant]
  6. NITROGLYCERIN [Concomitant]
  7. LANSOPRAZOLE [Concomitant]
  8. INSULIN [Concomitant]
  9. PROPACET 100 [Concomitant]
  10. NITROGLYCERIN [Concomitant]
  11. SALBUTAMOL (SALBUTAMOL) [Concomitant]
  12. SERETIDE MITE (FLUTICASONE PROPIONATE, SALMETEROL XINAFOATE) [Concomitant]
  13. MOMETASONE FUROATE (MOMETASONE FUROATE) [Concomitant]

REACTIONS (18)
  - ALANINE AMINOTRANSFERASE INCREASED [None]
  - ANAEMIA [None]
  - ASPARTATE AMINOTRANSFERASE INCREASED [None]
  - ATRIOVENTRICULAR BLOCK [None]
  - BACTERIA URINE IDENTIFIED [None]
  - BLOOD PRESSURE DECREASED [None]
  - BONE INFECTION [None]
  - CREATININE RENAL CLEARANCE DECREASED [None]
  - DRUG INTERACTION [None]
  - DYSPEPSIA [None]
  - ELECTROCARDIOGRAM ABNORMAL [None]
  - GASTROINTESTINAL FUNGAL INFECTION [None]
  - LIVER FUNCTION TEST ABNORMAL [None]
  - LOCALISED INFECTION [None]
  - NAUSEA [None]
  - OESOPHAGEAL DISORDER [None]
  - SUPRAVENTRICULAR TACHYCARDIA [None]
  - URINARY TRACT INFECTION [None]
